FAERS Safety Report 10587646 (Version 2)
Quarter: 2014Q4

REPORT INFORMATION
  Report Type: Spontaneous
  Country: IT (occurrence: IT)
  Receive Date: 20141117
  Receipt Date: 20141125
  Transmission Date: 20150529
  Serious: Yes (Hospitalization)
  Sender: FDA-Public Use
  Company Number: IT-TEVA-521493ISR

PATIENT
  Age: 53 Year
  Sex: Female

DRUGS (4)
  1. CARBOLITHIUM 150 MG [Suspect]
     Active Substance: LITHIUM CARBONATE
     Indication: DEPRESSION
     Dosage: 300 MILLIGRAM DAILY;
     Route: 048
     Dates: start: 20140101, end: 20140805
  2. SEROQUEL 100 MG [Concomitant]
     Dosage: 200 MILLIGRAM DAILY;
  3. FELISON 30 MG [Concomitant]
     Dosage: 60 MILLIGRAM DAILY;
  4. CLORPROMAZINA CLORIDRATO [Concomitant]
     Dosage: 50 MILLIGRAM DAILY;

REACTIONS (1)
  - Acute kidney injury [Unknown]

NARRATIVE: CASE EVENT DATE: 20140801
